FAERS Safety Report 13099549 (Version 2)
Quarter: 2017Q1

REPORT INFORMATION
  Report Type: Spontaneous
  Country: IN (occurrence: IN)
  Receive Date: 20170109
  Receipt Date: 20170116
  Transmission Date: 20170428
  Serious: Yes (Death, Life-Threatening, Other)
  Sender: FDA-Public Use
  Company Number: IN-CONCORDIA PHARMACEUTICALS INC.-GSH201701-000014

PATIENT
  Age: 13 Year
  Sex: Female

DRUGS (2)
  1. HYDROXYCHLOROQUINE [Suspect]
     Active Substance: HYDROXYCHLOROQUINE
     Indication: SYSTEMIC LUPUS ERYTHEMATOSUS
     Route: 065
  2. PREDNISOLONE. [Suspect]
     Active Substance: PREDNISOLONE
     Indication: SYSTEMIC LUPUS ERYTHEMATOSUS
     Route: 048

REACTIONS (14)
  - Rash maculo-papular [Fatal]
  - Lymphadenopathy [Fatal]
  - Erythema [Fatal]
  - Hilar lymphadenopathy [Fatal]
  - Pulmonary hypertension [Fatal]
  - Histoplasmosis disseminated [Fatal]
  - Abdominal distension [Fatal]
  - Abdominal pain [Fatal]
  - Biopsy bone marrow abnormal [Fatal]
  - Pulmonary alveolar haemorrhage [Fatal]
  - Septic shock [Fatal]
  - Pyrexia [Fatal]
  - Productive cough [Fatal]
  - Hepatosplenomegaly [Fatal]
